FAERS Safety Report 21403067 (Version 6)
Quarter: 2022Q4

REPORT INFORMATION
  Report Type: Spontaneous
  Country: FR (occurrence: FR)
  Receive Date: 20221003
  Receipt Date: 20221020
  Transmission Date: 20230113
  Serious: Yes (Other)
  Sender: FDA-Public Use
  Company Number: FR-AFSSAPS-BS20221323

PATIENT
  Age: 41 Year
  Sex: Male

DRUGS (1)
  1. HUMIRA [Suspect]
     Active Substance: ADALIMUMAB
     Indication: Crohn^s disease
     Route: 058
     Dates: start: 202012

REACTIONS (4)
  - Ischaemic stroke [Recovered/Resolved with Sequelae]
  - Vertigo [Recovering/Resolving]
  - Ischaemic stroke [Recovered/Resolved with Sequelae]
  - COVID-19 [Unknown]

NARRATIVE: CASE EVENT DATE: 20210101
